FAERS Safety Report 4998552-6 (Version None)
Quarter: 2006Q2

REPORT INFORMATION
  Report Type: 
  Country: None (occurrence: None)
  Receive Date: 20060508
  Receipt Date: 20060424
  Transmission Date: 20061013
  Serious: Yes (Death, Hospitalization)
  Sender: FDA-Public Use
  Company Number: 028-C5013-06040804

PATIENT
  Age: 74 Year
  Sex: Female
  Weight: 40.8 kg

DRUGS (9)
  1. CC-5013 (LENALIDOMIDE) CAPSULES [Suspect]
     Indication: MULTIPLE MYELOMA
     Dosage: 10 MG, QD, ORAL
     Route: 048
     Dates: start: 20060310, end: 20060324
  2. THYROXIN (LEVOTHYROXINE SODIUM) [Concomitant]
  3. HYDROXYCHLOROQUINE (HYDROXYCHLOROQUINE) [Concomitant]
  4. PREMARIN [Concomitant]
  5. CALCIUM WITH VITAMIN D (CALCIUM WITH VITAMIN D) [Concomitant]
  6. ACTONEL [Concomitant]
  7. G-CSF (GRANULOCYTE COLONY STIMULATING FACTOR) [Concomitant]
  8. EPREX [Concomitant]
  9. MELPHALAN [Suspect]
     Indication: MULTIPLE MYELOMA
     Route: 048
     Dates: start: 20060310, end: 20060313

REACTIONS (5)
  - FEBRILE NEUTROPENIA [None]
  - LUNG INFECTION PSEUDOMONAL [None]
  - PLATELET COUNT DECREASED [None]
  - PULMONARY OEDEMA [None]
  - RESPIRATORY FAILURE [None]
